FAERS Safety Report 4740750-0 (Version None)
Quarter: 2005Q3

REPORT INFORMATION
  Report Type: 
  Country: None (occurrence: None)
  Receive Date: 20050810
  Receipt Date: 20050810
  Transmission Date: 20060218
  Serious: Yes (Hospitalization)
  Sender: FDA-Public Use
  Company Number: None

PATIENT
  Age: 49 Year
  Sex: Male
  Weight: 100.2449 kg

DRUGS (9)
  1. CITALOPRAM [Suspect]
     Indication: DEPRESSION
     Dosage: 20 MG DAILY
  2. VENLAFAXINE [Suspect]
     Indication: ANXIETY
     Dosage: 75 MG BID
  3. VENLAFAXINE [Suspect]
     Indication: DEPRESSION
     Dosage: 75 MG BID
  4. . [Concomitant]
  5. . [Concomitant]
  6. . [Concomitant]
  7. . [Concomitant]
  8. . [Concomitant]
  9. . [Concomitant]

REACTIONS (2)
  - FALL [None]
  - ORTHOSTATIC INTOLERANCE [None]
